FAERS Safety Report 9409625 (Version 1)
Quarter: 2013Q3

REPORT INFORMATION
  Report Type: Spontaneous
  Country: FR (occurrence: FR)
  Receive Date: 20130719
  Receipt Date: 20130719
  Transmission Date: 20140515
  Serious: Yes (Hospitalization)
  Sender: FDA-Public Use
  Company Number: PHHY2013FR075103

PATIENT
  Age: 57 Year
  Sex: Male

DRUGS (8)
  1. LEPONEX / CLOZARIL (CLOZAPINE) [Suspect]
     Indication: SCHIZOPHRENIA
     Dosage: 550 MG, QD
     Route: 048
     Dates: start: 20120516, end: 20130327
  2. LEPTICUR [Suspect]
     Indication: PARKINSON^S DISEASE
     Dosage: 10 MG, QD
     Route: 048
     Dates: start: 20120801, end: 20130327
  3. LOXAPAC [Suspect]
     Indication: SCHIZOPHRENIA
     Dosage: 100 MG, QD
     Route: 048
     Dates: start: 20041113, end: 20130327
  4. INEXIUM//ESOMEPRAZOLE MAGNESIUM [Concomitant]
     Dosage: 20 MG, QD
     Route: 048
     Dates: start: 20130314
  5. TRANSIPEG//MACROGOL [Concomitant]
     Indication: CONSTIPATION
     Dosage: 5.9 G, TID
     Route: 048
     Dates: start: 20120605, end: 20130423
  6. NORMACOL LAVEMENT [Concomitant]
     Dosage: UNK IF NEEDED
     Route: 054
     Dates: start: 20130316
  7. BECLO RHINO [Concomitant]
     Dosage: 50 UG, QID
     Route: 045
     Dates: start: 20130314
  8. FORLAX//MACROGOL 4000 [Concomitant]
     Dosage: UNK UKN, UNK

REACTIONS (1)
  - Colitis [Recovering/Resolving]
